FAERS Safety Report 10689311 (Version 1)
Quarter: 2015Q1

REPORT INFORMATION
  Report Type: Spontaneous
  Country: US (occurrence: US)
  Receive Date: 20150105
  Receipt Date: 20150105
  Transmission Date: 20150720
  Serious: Yes (Hospitalization, Other)
  Sender: FDA-Public Use
  Company Number: US-ACCORD-027918

PATIENT
  Age: 77 Year
  Sex: Female

DRUGS (2)
  1. NAB PACLITAXEL [Suspect]
     Active Substance: PACLITAXEL
     Indication: PANCREATIC CARCINOMA
     Dosage: NAB-PACLITAXEL (125 MG/M2 DAYS 1, 8 AND 15) ON?A 28-DAY CYCLE.
     Dates: start: 20130807, end: 20131023
  2. GEMCITABINE/GEMCITABINE HYDROCHLORIDE [Suspect]
     Active Substance: GEMCITABINE\GEMCITABINE HYDROCHLORIDE
     Indication: PANCREATIC CARCINOMA
     Dosage: GEMCITABINE (1,000 MG/M2 DAYS 1,?8 AND 15) ON A 28-DAY CYCLE
     Dates: start: 20130807, end: 20140210

REACTIONS (8)
  - Pulmonary oedema [Unknown]
  - Anaemia [Unknown]
  - Pneumonia [Unknown]
  - Gastrointestinal haemorrhage [Unknown]
  - Rash [Unknown]
  - Thrombocytopenia [Unknown]
  - Pleural effusion [Unknown]
  - Cardiac failure congestive [Recovering/Resolving]

NARRATIVE: CASE EVENT DATE: 20131009
